FAERS Safety Report 23975864 (Version 1)
Quarter: 2024Q2

REPORT INFORMATION
  Report Type: Spontaneous
  Country: US (occurrence: US)
  Receive Date: 20240614
  Receipt Date: 20240614
  Transmission Date: 20240716
  Serious: No
  Sender: FDA-Public Use
  Company Number: US-ALVOGEN-2024094614

PATIENT
  Sex: Male

DRUGS (1)
  1. LORAZEPAM [Suspect]
     Active Substance: LORAZEPAM
     Indication: Anxiety
     Dosage: LOREEX XR 1 MG?AT NIGHT

REACTIONS (4)
  - Sedation [Unknown]
  - Fatigue [Unknown]
  - Somnolence [Unknown]
  - Inappropriate schedule of product administration [Unknown]
